FAERS Safety Report 14181877 (Version 1)
Quarter: 2017Q4

REPORT INFORMATION
  Report Type: Report from Study
  Country: None (occurrence: BR)
  Receive Date: 20171113
  Receipt Date: 20171113
  Transmission Date: 20180321
  Serious: Yes (Disabling)
  Sender: FDA-Public Use
  Company Number: BR-ABBVIE-17K-020-2156294-00

PATIENT
  Age: 61 Year
  Sex: Female
  Weight: 72 kg

DRUGS (1)
  1. HUMIRA [Suspect]
     Active Substance: ADALIMUMAB
     Indication: RHEUMATOID ARTHRITIS
     Route: 058
     Dates: start: 20170713, end: 20171019

REACTIONS (14)
  - Catarrh [Not Recovered/Not Resolved]
  - Viral infection [Unknown]
  - Influenza [Unknown]
  - Paranasal sinus haemorrhage [Not Recovered/Not Resolved]
  - Pain [Not Recovered/Not Resolved]
  - Back pain [Recovering/Resolving]
  - Oropharyngeal pain [Not Recovered/Not Resolved]
  - Sinusitis [Unknown]
  - Joint swelling [Not Recovered/Not Resolved]
  - Nephrolithiasis [Unknown]
  - Pyrexia [Recovered/Resolved]
  - Pain in extremity [Not Recovered/Not Resolved]
  - Arthralgia [Unknown]
  - Gait inability [Unknown]

NARRATIVE: CASE EVENT DATE: 2017
